FAERS Safety Report 11651144 (Version 1)
Quarter: 2015Q4

REPORT INFORMATION
  Report Type: Spontaneous
  Country: US (occurrence: US)
  Receive Date: 20151021
  Receipt Date: 20151021
  Transmission Date: 20160304
  Serious: No
  Sender: FDA-Public Use
  Company Number: US-BAUSCH-BL-2015-016081

PATIENT
  Sex: Female

DRUGS (2)
  1. BUPROPION. [Suspect]
     Active Substance: BUPROPION
     Indication: BIPOLAR DISORDER
     Route: 065
  2. BUPROPION HYDROCHLORIDE XL [Suspect]
     Active Substance: BUPROPION HYDROCHLORIDE
     Indication: BIPOLAR DISORDER
     Route: 065

REACTIONS (1)
  - Drug ineffective [Unknown]
